FAERS Safety Report 8502791 (Version 5)
Quarter: 2015Q2

REPORT INFORMATION
  Report Type: Spontaneous
  Country: US (occurrence: US)
  Receive Date: 20120410
  Receipt Date: 20150603
  Transmission Date: 20150821
  Serious: Yes (Hospitalization, Disabling, Other)
  Sender: FDA-Public Use
  Company Number: US-MERCK-1204USA01069

PATIENT
  Sex: Female

DRUGS (2)
  1. FOSAMAX [Suspect]
     Active Substance: ALENDRONATE SODIUM
     Indication: OSTEOPENIA
  2. FOSAMAX [Suspect]
     Active Substance: ALENDRONATE SODIUM
     Indication: OSTEOPOROSIS
     Dosage: 70 MG, QW
     Route: 048
     Dates: start: 20050628, end: 20110605

REACTIONS (28)
  - Fall [Unknown]
  - Haemoglobin decreased [Unknown]
  - Spinal osteoarthritis [Unknown]
  - Atrial fibrillation [Unknown]
  - Kyphosis [Unknown]
  - Pain in extremity [Unknown]
  - Arthralgia [Unknown]
  - Vertebral foraminal stenosis [Unknown]
  - Drug ineffective [Unknown]
  - Arthralgia [Unknown]
  - Femoral neck fracture [Recovered/Resolved]
  - Open reduction of fracture [Unknown]
  - Spondylolisthesis [Unknown]
  - Sciatica [Unknown]
  - Hip arthroplasty [Unknown]
  - Haemorrhagic anaemia [Unknown]
  - Intervertebral disc degeneration [Unknown]
  - Migraine [Not Recovered/Not Resolved]
  - Open reduction of fracture [Unknown]
  - Colon adenoma [Unknown]
  - Spondylolysis [Unknown]
  - Hysterectomy [Unknown]
  - Blood cholesterol increased [Unknown]
  - Spinal pain [Unknown]
  - Pain in extremity [Not Recovered/Not Resolved]
  - Femur fracture [Recovered/Resolved]
  - Post procedural haemorrhage [Unknown]
  - Back pain [Not Recovered/Not Resolved]

NARRATIVE: CASE EVENT DATE: 2007
